FAERS Safety Report 16393890 (Version 2)
Quarter: 2019Q2

REPORT INFORMATION
  Report Type: Spontaneous
  Country: US (occurrence: US)
  Receive Date: 20190605
  Receipt Date: 20190619
  Transmission Date: 20190711
  Serious: No
  Sender: FDA-Public Use
  Company Number: US-ALLERGAN-1839078US

PATIENT
  Age: 19 Year
  Sex: Female

DRUGS (3)
  1. SPIRONOLACTONE. [Concomitant]
     Active Substance: SPIRONOLACTONE
     Indication: ACNE
     Dosage: UNK
     Route: 048
  2. CEFADROXIL. [Concomitant]
     Active Substance: CEFADROXIL
     Indication: ACNE
     Dosage: UNK
     Route: 048
  3. TAYTULLA [Suspect]
     Active Substance: ETHINYL ESTRADIOL\NORETHINDRONE ACETATE
     Indication: MENSTRUAL DISORDER
     Dosage: 1 DF, QD
     Route: 048
     Dates: start: 201807

REACTIONS (3)
  - Breast tenderness [Not Recovered/Not Resolved]
  - Menstruation delayed [Not Recovered/Not Resolved]
  - Off label use [Unknown]
